FAERS Safety Report 10405232 (Version 1)
Quarter: 2014Q3

REPORT INFORMATION
  Report Type: Spontaneous
  Country: GB (occurrence: GB)
  Receive Date: 20140825
  Receipt Date: 20140825
  Transmission Date: 20150326
  Serious: Yes (Other)
  Sender: FDA-Public Use
  Company Number: PHFR2014GB005792

PATIENT

DRUGS (1)
  1. ESTRADERM [Suspect]
     Active Substance: ESTRADIOL
     Dosage: UNK UKN, UNK
     Route: 062
     Dates: start: 2014

REACTIONS (3)
  - Gait disturbance [Unknown]
  - Expired product administered [Unknown]
  - Dyspnoea [Unknown]
